FAERS Safety Report 5842822-6 (Version None)
Quarter: 2008Q3

REPORT INFORMATION
  Report Type: 
  Country: None (occurrence: None)
  Receive Date: 20080811
  Receipt Date: 20080801
  Transmission Date: 20090109
  Serious: Yes (Hospitalization, Other)
  Sender: FDA-Public Use
  Company Number: 2008SP015769

PATIENT
  Age: 60 Year
  Sex: Female
  Weight: 81.7 kg

DRUGS (3)
  1. TEMOZOLOMIDE [Suspect]
     Indication: GLIOBLASTOMA MULTIFORME
     Dosage: 140 MG; PO
     Route: 048
     Dates: start: 20071012, end: 20071206
  2. BEVACIZUMAB [Suspect]
     Indication: GLIOBLASTOMA MULTIFORME
     Dosage: 10 MG/KG; IV
     Route: 042
     Dates: start: 20071012, end: 20071116
  3. DEXAMETHASONE TAB [Suspect]
     Indication: DRUG USE FOR UNKNOWN INDICATION

REACTIONS (10)
  - CEREBROVASCULAR ACCIDENT [None]
  - CONFUSIONAL STATE [None]
  - ENCEPHALOPATHY [None]
  - HYPOKALAEMIA [None]
  - HYPONATRAEMIA [None]
  - HYPOTENSION [None]
  - INAPPROPRIATE ANTIDIURETIC HORMONE SECRETION [None]
  - PNEUMONIA [None]
  - SOMNOLENCE [None]
  - TREATMENT NONCOMPLIANCE [None]
